FAERS Safety Report 16692339 (Version 2)
Quarter: 2019Q3

REPORT INFORMATION
  Report Type: Spontaneous
  Country: US (occurrence: US)
  Receive Date: 20190812
  Receipt Date: 20190912
  Transmission Date: 20191004
  Serious: Yes (Other)
  Sender: FDA-Public Use
  Company Number: US-AKORN PHARMACEUTICALS-2019AKN01669

PATIENT
  Age: 14 Year
  Sex: Female
  Weight: 78.01 kg

DRUGS (4)
  1. MYORISAN [Suspect]
     Active Substance: ISOTRETINOIN
     Dosage: 40 MG, 1X/DAY
     Route: 048
     Dates: start: 20190627, end: 20190727
  2. MYORISAN [Suspect]
     Active Substance: ISOTRETINOIN
     Indication: ACNE
     Dosage: 40 MG, 1X/DAY FOR ONE MONTH
     Route: 048
     Dates: start: 20190408, end: 201905
  3. MYORISAN [Suspect]
     Active Substance: ISOTRETINOIN
     Indication: ACNE
     Dosage: 20 MG EVERY MORNING [40 MG EVERY EVENING]
     Route: 048
     Dates: start: 20190506, end: 2019
  4. MYORISAN [Suspect]
     Active Substance: ISOTRETINOIN
     Dosage: 40 MG EVERY EVENING [20 MG EVERY MORNING]
     Route: 048
     Dates: start: 20190506, end: 2019

REACTIONS (8)
  - Anxiety [Recovered/Resolved]
  - Aspartate aminotransferase increased [Recovered/Resolved]
  - Alanine aminotransferase increased [Recovered/Resolved]
  - High density lipoprotein decreased [Recovered/Resolved]
  - Low density lipoprotein increased [Recovered/Resolved]
  - Blood triglycerides increased [Recovered/Resolved]
  - Off label use [Recovered/Resolved]
  - Blood cholesterol increased [Recovered/Resolved]

NARRATIVE: CASE EVENT DATE: 2019
